FAERS Safety Report 5996737-3 (Version None)
Quarter: 2008Q4

REPORT INFORMATION
  Report Type: 
  Country: None (occurrence: None)
  Receive Date: 20081212
  Receipt Date: 20081022
  Transmission Date: 20090506
  Serious: Yes (Other)
  Sender: FDA-Public Use
  Company Number: US-ABBOTT-08P-163-0483513-00

PATIENT
  Sex: Male
  Weight: 90.8 kg

DRUGS (5)
  1. HUMIRA [Suspect]
     Indication: RHEUMATOID ARTHRITIS
     Dates: start: 20071126, end: 20080204
  2. LANSOPRAZOLE [Concomitant]
     Indication: GASTROOESOPHAGEAL REFLUX DISEASE
     Route: 048
  3. FOLIC ACID [Concomitant]
     Indication: DRUG USE FOR UNKNOWN INDICATION
  4. PREDNISONE TAB [Concomitant]
     Indication: RHEUMATOID ARTHRITIS
     Route: 048
  5. MORNIFLUMATE [Concomitant]
     Indication: PROSTATIC DISORDER
     Route: 048

REACTIONS (9)
  - ANAEMIA [None]
  - ASTHENIA [None]
  - CHEST PAIN [None]
  - ERYTHEMA [None]
  - HEADACHE [None]
  - MALIGNANT MELANOMA [None]
  - OEDEMA PERIPHERAL [None]
  - SKIN LESION [None]
  - WEIGHT DECREASED [None]
